FAERS Safety Report 4986070-0 (Version None)
Quarter: 2006Q2

REPORT INFORMATION
  Report Type: 
  Country: None (occurrence: None)
  Receive Date: 20060428
  Receipt Date: 20060418
  Transmission Date: 20061013
  Serious: Yes (Death, Other)
  Sender: FDA-Public Use
  Company Number: PHFR2006GB01449

PATIENT
  Age: 64 Year
  Sex: Male
  Weight: 89.5 kg

DRUGS (5)
  1. ZOMETA [Suspect]
     Indication: MULTIPLE MYELOMA
     Dosage: 4 MG/DAY
     Route: 042
     Dates: start: 20020607, end: 20040404
  2. LORON [Suspect]
     Dosage: 2 TABLETS
     Route: 048
     Dates: start: 20000126, end: 20020607
  3. THALIDOMIDE [Concomitant]
     Indication: MULTIPLE MYELOMA
     Dosage: 200 MG/DAY
     Route: 048
  4. DEXAMETHASONE [Concomitant]
     Indication: MULTIPLE MYELOMA
     Route: 048
  5. CYCLOPHOSPHAMIDE [Concomitant]
     Indication: MULTIPLE MYELOMA
     Dosage: 500 MG/WEEKLY
     Route: 048

REACTIONS (3)
  - BONE DEBRIDEMENT [None]
  - MALIGNANT NEOPLASM PROGRESSION [None]
  - OSTEONECROSIS [None]
